FAERS Safety Report 13291811 (Version 4)
Quarter: 2017Q3

REPORT INFORMATION
  Report Type: Spontaneous
  Country: JP (occurrence: JP)
  Receive Date: 20170303
  Receipt Date: 20170707
  Transmission Date: 20171127
  Serious: Yes (Death, Hospitalization)
  Sender: FDA-Public Use
  Company Number: JP-AMGEN-JPNSP2017009580

PATIENT
  Age: 88 Year
  Sex: Female
  Weight: 50 kg

DRUGS (6)
  1. PRALIA [Suspect]
     Active Substance: DENOSUMAB
     Indication: OSTEOPOROSIS
     Dosage: 60 MG, UNK
     Route: 058
     Dates: start: 20160808, end: 20160808
  2. EDIROL [Concomitant]
     Active Substance: ELDECALCITOL
     Indication: OSTEOPOROSIS
     Dosage: 1 DF, QD
     Route: 048
     Dates: start: 20160729
  3. DENOTAS [Concomitant]
     Active Substance: CALCIUM CARBONATE\CHOLECALCIFEROL\MAGNESIUM CARBONATE
     Indication: HYPOCALCAEMIA
     Dosage: 2 DF, QD
     Route: 048
     Dates: start: 20160729
  4. NEO VITACAIN [Concomitant]
     Indication: BACK PAIN
     Dosage: 5 CC, QD
     Route: 058
     Dates: start: 20110927
  5. OPALMON [Concomitant]
     Active Substance: LIMAPROST
     Indication: LUMBAR SPINAL STENOSIS
     Dosage: 1 DF, TID
     Route: 048
     Dates: start: 20100514
  6. ELCITONIN [Concomitant]
     Active Substance: ELCATONIN
     Indication: OSTEOPOROSIS
     Dosage: 20 IU, QD
     Route: 058
     Dates: start: 20110927

REACTIONS (3)
  - Death [Fatal]
  - Muscular weakness [Not Recovered/Not Resolved]
  - Haematuria [Fatal]

NARRATIVE: CASE EVENT DATE: 20160826
